FAERS Safety Report 17754991 (Version 3)
Quarter: 2020Q2

REPORT INFORMATION
  Report Type: Report from Study
  Country: GB (occurrence: GB)
  Receive Date: 20200507
  Receipt Date: 20200618
  Transmission Date: 20200714
  Serious: Yes (Other)
  Sender: FDA-Public Use
  Company Number: GB-SAMSUNG BIOEPIS-SB-2020-15418

PATIENT
  Sex: Male

DRUGS (1)
  1. IMRALDI [Suspect]
     Active Substance: ADALIMUMAB
     Indication: RHEUMATOID ARTHRITIS
     Route: 058
     Dates: start: 202002

REACTIONS (16)
  - Device issue [Unknown]
  - Hallucination [Unknown]
  - Musculoskeletal discomfort [Not Recovered/Not Resolved]
  - Suspected COVID-19 [Unknown]
  - Fatigue [Unknown]
  - Hyperhidrosis [Unknown]
  - Headache [Unknown]
  - Accidental exposure to product [Unknown]
  - Psychiatric symptom [Unknown]
  - Decreased appetite [Unknown]
  - Nausea [Unknown]
  - Malaise [Unknown]
  - Chills [Not Recovered/Not Resolved]
  - Weight decreased [Unknown]
  - Exposure via skin contact [Unknown]
  - Incorrect dose administered [Unknown]
